FAERS Safety Report 18582240 (Version 1)
Quarter: 2020Q4

REPORT INFORMATION
  Report Type: Spontaneous
  Country: US (occurrence: US)
  Receive Date: 20201202
  Receipt Date: 20201202
  Transmission Date: 20210114
  Serious: Yes (Other)
  Sender: FDA-Public Use
  Company Number: None

PATIENT
  Age: 63 Year
  Sex: Male

DRUGS (5)
  1. XARELTO [Concomitant]
     Active Substance: RIVAROXABAN
  2. CARVEDILOL. [Concomitant]
     Active Substance: CARVEDILOL
  3. ROZLYTREK [Suspect]
     Active Substance: ENTRECTINIB
     Indication: NON-SMALL CELL LUNG CANCER
     Dosage: ?          QUANTITY:3 DF DOSAGE FORM;?
     Route: 048
     Dates: start: 20201107, end: 20201120
  4. LORAZEPAM. [Concomitant]
     Active Substance: LORAZEPAM
  5. LOSARTAN. [Concomitant]
     Active Substance: LOSARTAN

REACTIONS (3)
  - Neuralgia [None]
  - Dizziness [None]
  - Bone disorder [None]
